FAERS Safety Report 14831778 (Version 1)
Quarter: 2018Q2

REPORT INFORMATION
  Report Type: Spontaneous
  Country: US (occurrence: US)
  Receive Date: 20180408
  Receipt Date: 20180408
  Transmission Date: 20180711
  Serious: Yes (Other)
  Sender: FDA-Public Use
  Company Number: None

PATIENT
  Age: 39 Year
  Sex: Male
  Weight: 115.2 kg

DRUGS (2)
  1. VENTOLIN HFA [Suspect]
     Active Substance: ALBUTEROL SULFATE
     Indication: SEASONAL ALLERGY
     Dosage: ?          OTHER STRENGTH:MCG;QUANTITY:2 PUFF(S);?
     Route: 055
     Dates: start: 20180330, end: 20180404
  2. CETIRIZINE [Concomitant]
     Active Substance: CETIRIZINE HYDROCHLORIDE

REACTIONS (6)
  - Depression [None]
  - Abnormal dreams [None]
  - Loss of consciousness [None]
  - Feeling of despair [None]
  - Cough [None]
  - Suicidal ideation [None]

NARRATIVE: CASE EVENT DATE: 20180404
